FAERS Safety Report 20480794 (Version 1)
Quarter: 2022Q1

REPORT INFORMATION
  Report Type: Spontaneous
  Country: ES (occurrence: None)
  Receive Date: 20220216
  Receipt Date: 20220216
  Transmission Date: 20220423
  Serious: No
  Sender: FDA-Public Use
  Company Number: None

PATIENT
  Age: 4 Year
  Sex: Male

DRUGS (1)
  1. SINGULAIR [Suspect]
     Active Substance: MONTELUKAST SODIUM
     Indication: Product used for unknown indication
     Dates: start: 20211215, end: 20220106

REACTIONS (9)
  - Depression [None]
  - Decreased appetite [None]
  - Dysarthria [None]
  - Bradykinesia [None]
  - Hypotonia [None]
  - Asthenia [None]
  - Negative thoughts [None]
  - Tic [None]
  - Fatigue [None]

NARRATIVE: CASE EVENT DATE: 20220104
